FAERS Safety Report 13955919 (Version 2)
Quarter: 2017Q4

REPORT INFORMATION
  Report Type: Spontaneous
  Country: US (occurrence: US)
  Receive Date: 20170911
  Receipt Date: 20171106
  Transmission Date: 20180320
  Serious: Yes (Other)
  Sender: FDA-Public Use
  Company Number: US-ELI_LILLY_AND_COMPANY-US201709003138

PATIENT
  Age: 0 Year
  Sex: Female
  Weight: 83.9 kg

DRUGS (2)
  1. TRULICITY [Suspect]
     Active Substance: DULAGLUTIDE
     Indication: TYPE 2 DIABETES MELLITUS
     Dosage: 0.75 MG, UNKNOWN
     Route: 065
     Dates: start: 20170623, end: 20170906
  2. TRULICITY [Suspect]
     Active Substance: DULAGLUTIDE
     Indication: GLYCOSYLATED HAEMOGLOBIN INCREASED

REACTIONS (4)
  - Amylase increased [Recovered/Resolved]
  - Lipase increased [Recovered/Resolved]
  - Lipase increased [Recovered/Resolved]
  - Amylase increased [Recovered/Resolved]

NARRATIVE: CASE EVENT DATE: 20170802
